FAERS Safety Report 4446220-1 (Version None)
Quarter: 2004Q3

REPORT INFORMATION
  Report Type: 
  Country: None (occurrence: None)
  Receive Date: 20040903
  Receipt Date: 20040823
  Transmission Date: 20050211
  Serious: Yes (Other)
  Sender: FDA-Public Use
  Company Number: GBWYE935028JUL04

PATIENT
  Sex: Female

DRUGS (2)
  1. EFFEXOR [Suspect]
     Dosage: SEE IMAGE
     Route: 048
  2. DIAZEPAM [Concomitant]

REACTIONS (2)
  - HALLUCINATION, VISUAL [None]
  - HUNTINGTON'S CHOREA [None]
